FAERS Safety Report 15000598 (Version 1)
Quarter: 2018Q2

REPORT INFORMATION
  Report Type: Spontaneous
  Country: DE (occurrence: DE)
  Receive Date: 20180612
  Receipt Date: 20180612
  Transmission Date: 20180711
  Serious: Yes (Hospitalization)
  Sender: FDA-Public Use
  Company Number: DE-TEVA-2018-DE-905261

PATIENT
  Age: 73 Year
  Sex: Male
  Weight: 85 kg

DRUGS (11)
  1. AMATIXUMAB [Suspect]
     Active Substance: AMATUXIMAB
     Dosage: 5 MG / KG, SCHEME, SOLUTION FOR INJECTION / INFUSION
     Route: 042
  2. VITAMIN B12 [Concomitant]
     Active Substance: CYANOCOBALAMIN
     Dosage: 1000 MICROG, ACCORDING TO THE SCHEME, SOLUTION FOR INJECTION / INFUSION
     Route: 030
  3. IBUPROFEN. [Concomitant]
     Active Substance: IBUPROFEN
     Dosage: 600 MG, BEDARF, TABLETTEN
     Route: 048
  4. FOLIC ACID. [Concomitant]
     Active Substance: FOLIC ACID
     Dosage: 0.4 MG, 1-0-0-0, TABLETTEN
     Route: 048
  5. OMEPRAZOL [Concomitant]
     Active Substance: OMEPRAZOLE
     Dosage: 20 MG, 1-0-0-0, TABLETTEN
     Route: 048
  6. ONDANSETRON [Concomitant]
     Active Substance: ONDANSETRON
     Dosage: 8 MG, BEDARF, TABLETTEN
     Route: 048
  7. CISPLATIN. [Suspect]
     Active Substance: CISPLATIN
     Dosage: 75 MG / M2, SCHEME, SOLUTION FOR INJECTION / INFUSION
     Route: 042
  8. PEMETREXED. [Suspect]
     Active Substance: PEMETREXED
     Dosage: 500 MG/M2, SCHEMA, INJECTIONS/INFUSIONS
     Route: 042
  9. MCP [Concomitant]
     Active Substance: METOCLOPRAMIDE HYDROCHLORIDE
     Dosage: 10 MG, BEDARF, TABLETTEN
     Route: 048
  10. FORTECORTIN 4 MG [Concomitant]
     Dosage: 4 MG, NACH SCHEMA, TABLETTEN
     Route: 048
  11. MOVICOL [Concomitant]
     Active Substance: POLYETHYLENE GLYCOL 3350\POTASSIUM CHLORIDE\SODIUM BICARBONATE\SODIUM CHLORIDE
     Dosage: 13.125|0.35|0.18|0.05 G, 1-0-0-0, BEUTEL
     Route: 048

REACTIONS (6)
  - Nausea [Unknown]
  - Decreased appetite [Unknown]
  - Constipation [Unknown]
  - Pleural mesothelioma malignant [Unknown]
  - Off label use [Unknown]
  - Acute kidney injury [Unknown]
